FAERS Safety Report 5115810-5 (Version None)
Quarter: 2006Q3

REPORT INFORMATION
  Report Type: 
  Country: None (occurrence: None)
  Receive Date: 20060927
  Receipt Date: 20060915
  Transmission Date: 20061208
  Serious: Yes (Other)
  Sender: FDA-Public Use
  Company Number: IL-JNJFOC-20060904371

PATIENT
  Age: 60 Year
  Sex: Male

DRUGS (1)
  1. TOPAMAX [Suspect]
     Indication: WEIGHT DECREASED
     Route: 048

REACTIONS (2)
  - FACIAL PALSY [None]
  - OFF LABEL USE [None]
